FAERS Safety Report 7209302-7 (Version None)
Quarter: 2011Q1

REPORT INFORMATION
  Report Type: 
  Country: None (occurrence: None)
  Receive Date: 20110104
  Receipt Date: 20101230
  Transmission Date: 20110831
  Serious: Yes (Other)
  Sender: FDA-Public Use
  Company Number: DE-BRISTOL-MYERS SQUIBB COMPANY-15256449

PATIENT
  Age: 7 Month
  Sex: Female
  Weight: 7 kg

DRUGS (5)
  1. BETAMETHASONE [Concomitant]
  2. CEFUROXIME [Concomitant]
  3. TRUVADA [Suspect]
     Dosage: 1DF= 300/200 MG
     Route: 064
     Dates: end: 20090613
  4. REYATAZ [Suspect]
     Route: 064
     Dates: end: 20090613
  5. NORVIR [Suspect]
     Route: 064
     Dates: end: 20090613

REACTIONS (10)
  - RETINOPATHY OF PREMATURITY [None]
  - RESPIRATORY DISTRESS [None]
  - INTRAVENTRICULAR HAEMORRHAGE [None]
  - CEREBRAL PALSY [None]
  - MICROCEPHALY [None]
  - STRABISMUS [None]
  - INTESTINAL PERFORATION [None]
  - PATENT DUCTUS ARTERIOSUS [None]
  - PERITONITIS [None]
  - HYDROCEPHALUS [None]
